FAERS Safety Report 15223458 (Version 1)
Quarter: 2018Q3

REPORT INFORMATION
  Report Type: Spontaneous
  Country: US (occurrence: US)
  Receive Date: 20180731
  Receipt Date: 20180731
  Transmission Date: 20181010
  Serious: No
  Sender: FDA-Public Use
  Company Number: US-ENDO PHARMACEUTICALS INC-2017-007204

PATIENT
  Age: 61 Year
  Sex: Male
  Weight: 112.9 kg

DRUGS (1)
  1. TESTOPEL [Suspect]
     Active Substance: TESTOSTERONE
     Indication: BLOOD TESTOSTERONE DECREASED
     Dosage: UNK UNK, 11 PELLETS (825 MG)
     Route: 065
     Dates: start: 20171104, end: 20171104

REACTIONS (4)
  - Heart rate increased [Recovered/Resolved]
  - Prescribed overdose [Unknown]
  - Weight increased [Not Recovered/Not Resolved]
  - Blood pressure increased [Unknown]

NARRATIVE: CASE EVENT DATE: 201711
